FAERS Safety Report 25619336 (Version 1)
Quarter: 2025Q3

REPORT INFORMATION
  Report Type: Spontaneous
  Country: US (occurrence: None)
  Receive Date: 20250729
  Receipt Date: 20250729
  Transmission Date: 20251021
  Serious: No
  Sender: INCYTE
  Company Number: US-INCYTE CORPORATION-2025IN008028

PATIENT
  Age: 68 Year

DRUGS (1)
  1. JAKAFI [Suspect]
     Active Substance: RUXOLITINIB
     Dosage: 10 MILLIGRAM, BID

REACTIONS (6)
  - Product dose omission issue [Unknown]
  - Abdominal pain upper [Unknown]
  - Feeling hot [Unknown]
  - Anorgasmia [Unknown]
  - Flatulence [Unknown]
  - Fatigue [Unknown]
